FAERS Safety Report 4356087-8 (Version None)
Quarter: 2004Q2

REPORT INFORMATION
  Report Type: 
  Country: None (occurrence: None)
  Receive Date: 20040507
  Receipt Date: 20040507
  Transmission Date: 20050107
  Serious: Yes (Hospitalization)
  Sender: FDA-Public Use
  Company Number: None

PATIENT
  Age: 45 Year
  Sex: Male
  Weight: 118 kg

DRUGS (7)
  1. MOTRIN [Suspect]
     Indication: BACK PAIN
     Dosage: 1X OVERDOSE
  2. MOTRIN [Suspect]
     Indication: SCHIZOPHRENIA
     Dosage: 1X OVERDOSE
  3. AMITRIPTYLINE HCL [Suspect]
  4. BENADRYL [Suspect]
  5. FLUPHENAZINE [Suspect]
  6. ATIVAN [Suspect]
  7. RISPERDAL [Suspect]

REACTIONS (5)
  - ACCIDENTAL OVERDOSE [None]
  - BLOOD GLUCOSE INCREASED [None]
  - COMA [None]
  - LETHARGY [None]
  - MEDICATION ERROR [None]
